FAERS Safety Report 19008066 (Version 2)
Quarter: 2021Q1

REPORT INFORMATION
  Report Type: Spontaneous
  Country: TR (occurrence: TR)
  Receive Date: 20210315
  Receipt Date: 20210319
  Transmission Date: 20210420
  Serious: Yes (Other)
  Sender: FDA-Public Use
  Company Number: TR-GILEAD-2021-0520572

PATIENT
  Age: 43 Year
  Sex: Male

DRUGS (2)
  1. VIREAD [Suspect]
     Active Substance: TENOFOVIR DISOPROXIL FUMARATE
     Indication: HEPATITIS B
     Dosage: 1 DOSAGE FORM, QD
     Route: 065
     Dates: end: 202007
  2. ENTECAVIR. [Concomitant]
     Active Substance: ENTECAVIR

REACTIONS (3)
  - Osteoporosis [Unknown]
  - Depression [Unknown]
  - Hypophosphataemia [Unknown]
